FAERS Safety Report 7811266-X (Version None)
Quarter: 2011Q4

REPORT INFORMATION
  Report Type: 
  Country: None (occurrence: None)
  Receive Date: 20111012
  Receipt Date: 20111012
  Transmission Date: 20120403
  Serious: Yes (Hospitalization)
  Sender: FDA-Public Use
  Company Number: None

PATIENT
  Age: 88 Year
  Sex: Male
  Weight: 82.5547 kg

DRUGS (1)
  1. AVELOX [Suspect]
     Indication: CARDIAC PACEMAKER INSERTION
     Dosage: AVELOX 400MG TABLET
     Dates: start: 20110916

REACTIONS (3)
  - CONVULSION [None]
  - TREMOR [None]
  - HALLUCINATION [None]
